FAERS Safety Report 4826709-3 (Version None)
Quarter: 2005Q4

REPORT INFORMATION
  Report Type: 
  Country: None (occurrence: None)
  Receive Date: 20051114
  Receipt Date: 20050728
  Transmission Date: 20060501
  Serious: Yes (Death)
  Sender: FDA-Public Use
  Company Number: IT-SP-2005-01443

PATIENT
  Age: 69 Year
  Sex: Male

DRUGS (3)
  1. IMMUCYST [Suspect]
     Indication: CARCINOMA IN SITU OF BLADDER
     Dosage: A TOTAL OF 17 INSTILLATIONS
     Route: 043
     Dates: start: 20031009, end: 20050503
  2. IMMUCYST [Suspect]
     Dosage: A TOTAL OF 17 INSTILLATIONS
     Route: 043
     Dates: start: 20031009, end: 20050503
  3. IMMUCYST [Suspect]
     Dosage: A TOTAL OF 17 INSTILLATIONS
     Route: 043
     Dates: start: 20031009, end: 20050503

REACTIONS (5)
  - ACUTE RESPIRATORY DISTRESS SYNDROME [None]
  - EOSINOPHILIC PNEUMONIA ACUTE [None]
  - GRANULOMA [None]
  - SEPTIC SHOCK [None]
  - THERAPY NON-RESPONDER [None]
